FAERS Safety Report 12549780 (Version 1)
Quarter: 2016Q3

REPORT INFORMATION
  Report Type: Other
  Country: None (occurrence: CO)
  Receive Date: 20160712
  Receipt Date: 20160712
  Transmission Date: 20161109
  Serious: Yes (Other)
  Sender: FDA-Public Use
  Company Number: CO-POPULATION COUNCIL, INC.-1054954

PATIENT
  Sex: Female

DRUGS (1)
  1. JADELLE [Suspect]
     Active Substance: LEVONORGESTREL
     Indication: CONTRACEPTION
     Route: 058

REACTIONS (10)
  - Breast pain [None]
  - Back pain [None]
  - Chills [None]
  - Nipple pain [None]
  - Skin burning sensation [None]
  - Poisoning [None]
  - Fatigue [None]
  - Feeling hot [None]
  - Somnolence [None]
  - Abdominal pain [None]
